FAERS Safety Report 16361451 (Version 1)
Quarter: 2019Q3

REPORT INFORMATION
  Report Type: Spontaneous
  Country: US (occurrence: US)
  Receive Date: 20190524
  Receipt Date: 20190524
  Transmission Date: 20191004
  Serious: Yes (Hospitalization)
  Sender: FDA-Public Use
  Company Number: None

PATIENT
  Age: 80 Year
  Sex: Female

DRUGS (1)
  1. CAPECITABINE. [Suspect]
     Active Substance: CAPECITABINE
     Indication: COLON CANCER
     Route: 048

REACTIONS (6)
  - Diarrhoea [None]
  - Gastritis [None]
  - Feeling abnormal [None]
  - Malaise [None]
  - Blood electrolytes decreased [None]
  - Depressed level of consciousness [None]

NARRATIVE: CASE EVENT DATE: 20190512
